FAERS Safety Report 9938143 (Version 2)
Quarter: 2014Q2

REPORT INFORMATION
  Report Type: Spontaneous
  Country: US (occurrence: US)
  Receive Date: 20140303
  Receipt Date: 20140523
  Transmission Date: 20141212
  Serious: Yes (Other)
  Sender: FDA-Public Use
  Company Number: US-BRISTOL-MYERS SQUIBB COMPANY-20243630

PATIENT
  Sex: Male

DRUGS (2)
  1. ELIQUIS [Suspect]
  2. PRADAXA [Concomitant]

REACTIONS (1)
  - Basal cell carcinoma [Unknown]
